FAERS Safety Report 5181976-4 (Version None)
Quarter: 2006Q4

REPORT INFORMATION
  Report Type: 
  Country: None (occurrence: None)
  Receive Date: 20061220
  Receipt Date: 20060410
  Transmission Date: 20070319
  Serious: No
  Sender: FDA-Public Use
  Company Number: US-GLAXOSMITHKLINE-A0601081A

PATIENT
  Age: 57 Year
  Sex: Female

DRUGS (3)
  1. COMMIT [Suspect]
     Dates: start: 20030115
  2. COMMIT [Suspect]
     Dates: start: 20030115
  3. COMMIT [Suspect]
     Dates: start: 20030115

REACTIONS (4)
  - DYSPEPSIA [None]
  - INTENTIONAL DRUG MISUSE [None]
  - ORAL MUCOSAL EXFOLIATION [None]
  - SENSITIVITY OF TEETH [None]
